FAERS Safety Report 9294611 (Version 8)
Quarter: 2014Q1

REPORT INFORMATION
  Report Type: Spontaneous
  Country: US (occurrence: US)
  Receive Date: 20130517
  Receipt Date: 20140324
  Transmission Date: 20141002
  Serious: Yes (Other)
  Sender: FDA-Public Use
  Company Number: US-PFIZER INC-2013149765

PATIENT
  Age: 76 Year
  Sex: Male

DRUGS (10)
  1. INLYTA [Suspect]
     Indication: PROSTATE CANCER
     Dosage: 5 MG, 1X/DAY
     Route: 048
     Dates: start: 20120911
  2. INLYTA [Suspect]
     Indication: RENAL CANCER METASTATIC
  3. TRAVATAN [Concomitant]
     Dosage: UNK
  4. COMPAZINE [Concomitant]
     Indication: NAUSEA
     Dosage: 10 MG, UNK
  5. PLAVIX [Concomitant]
     Dosage: 75 MG, UNK
  6. TRICOR [Concomitant]
     Dosage: UNK
  7. ALPHAGAN [Concomitant]
     Dosage: UNK
     Route: 047
  8. LIPITOR [Concomitant]
     Dosage: UNK
  9. ASA [Concomitant]
     Dosage: 81 MG, UNK
  10. FISH OIL [Concomitant]
     Dosage: UNK

REACTIONS (6)
  - Rectal haemorrhage [Unknown]
  - Mouth haemorrhage [Unknown]
  - Diarrhoea [Not Recovered/Not Resolved]
  - Aphonia [Unknown]
  - Fatigue [Unknown]
  - Decreased appetite [Unknown]
